FAERS Safety Report 5157621-0 (Version None)
Quarter: 2006Q4

REPORT INFORMATION
  Report Type: 
  Country: None (occurrence: None)
  Receive Date: 20061115
  Receipt Date: 20061108
  Transmission Date: 20070319
  Serious: Yes (Death, Hospitalization)
  Sender: FDA-Public Use
  Company Number: 163-21880-06080523

PATIENT
  Age: 51 Year
  Sex: Female

DRUGS (10)
  1. REVLIMID [Suspect]
     Indication: MYELODYSPLASTIC SYNDROME
     Dosage: 10 MG, 1 IN 1 D, ORAL
     Route: 048
     Dates: start: 20060713, end: 20060811
  2. PHENERGAN     (PROMETHAZINE HYDROCHLORIDE) [Concomitant]
  3. LESCOL [Concomitant]
  4. MAVIK [Concomitant]
  5. DONG [Concomitant]
  6. TEGRETOL [Concomitant]
  7. MOBIC [Concomitant]
  8. LEXAPRO [Concomitant]
  9. PREDNISONE TAB [Concomitant]
  10. GLUCOVANCE [Concomitant]

REACTIONS (5)
  - CARDIAC FAILURE [None]
  - HEPATIC FAILURE [None]
  - PANCYTOPENIA [None]
  - PYODERMA GANGRENOSUM [None]
  - RENAL FAILURE [None]
